FAERS Safety Report 6901857-2 (Version None)
Quarter: 2010Q3

REPORT INFORMATION
  Report Type: 
  Country: None (occurrence: None)
  Receive Date: 20100803
  Receipt Date: 20080325
  Transmission Date: 20110219
  Serious: Yes (Other)
  Sender: FDA-Public Use
  Company Number: US-PFIZER INC-2008027028

PATIENT
  Sex: Female
  Weight: 63.636 kg

DRUGS (6)
  1. LYRICA [Suspect]
     Indication: HERPES ZOSTER
     Dates: start: 20080320, end: 20080320
  2. CRESTOR [Concomitant]
  3. SYNTHROID [Concomitant]
  4. TEMAZEPAM [Concomitant]
  5. IBUPROFEN [Concomitant]
  6. VALTREX [Concomitant]

REACTIONS (8)
  - DEREALISATION [None]
  - DRUG INEFFECTIVE [None]
  - DYSURIA [None]
  - EUPHORIC MOOD [None]
  - FEELING ABNORMAL [None]
  - IMPAIRED DRIVING ABILITY [None]
  - MENTAL IMPAIRMENT [None]
  - SWOLLEN TONGUE [None]
